FAERS Safety Report 7946723-9 (Version None)
Quarter: 2011Q4

REPORT INFORMATION
  Report Type: 
  Country: None (occurrence: None)
  Receive Date: 20111129
  Receipt Date: 20111122
  Transmission Date: 20120403
  Serious: Yes (Death)
  Sender: FDA-Public Use
  Company Number: IT-CELGENEUS-083-21880-11103060

PATIENT

DRUGS (5)
  1. ESCITALOPRAM [Concomitant]
     Indication: DEPRESSION
     Route: 065
     Dates: start: 20110808, end: 20110915
  2. ALLOPURINOL [Concomitant]
     Indication: HYPERURICAEMIA
     Route: 065
     Dates: start: 20110808, end: 20110915
  3. REVLIMID [Suspect]
     Indication: MULTIPLE MYELOMA
     Dosage: 10 MILLIGRAM
     Route: 048
     Dates: start: 20110520, end: 20110908
  4. ENOXAPARIN SODIUM [Concomitant]
     Route: 058
     Dates: start: 20110808, end: 20110915
  5. CLONIDINE [Concomitant]
     Indication: HYPERTENSION
     Route: 065
     Dates: start: 20110808, end: 20110915

REACTIONS (1)
  - DEATH [None]
